FAERS Safety Report 21525780 (Version 1)
Quarter: 2022Q4

REPORT INFORMATION
  Report Type: Report from Study
  Country: US (occurrence: US)
  Receive Date: 20221031
  Receipt Date: 20221031
  Transmission Date: 20230112
  Serious: No
  Sender: FDA-Public Use
  Company Number: US-ABBVIE-22K-163-4408032-00

PATIENT
  Sex: Female

DRUGS (1)
  1. IMBRUVICA [Suspect]
     Active Substance: IBRUTINIB
     Indication: Lymphocytic leukaemia
     Route: 048

REACTIONS (7)
  - Nail disorder [Unknown]
  - Onychalgia [Unknown]
  - Epistaxis [Unknown]
  - Onychoclasis [Unknown]
  - Dyspepsia [Unknown]
  - Nail infection [Unknown]
  - Muscle spasms [Unknown]
